FAERS Safety Report 7551911-X (Version None)
Quarter: 2011Q2

REPORT INFORMATION
  Report Type: 
  Country: None (occurrence: None)
  Receive Date: 20110616
  Receipt Date: 20110607
  Transmission Date: 20111010
  Serious: Yes (Hospitalization)
  Sender: FDA-Public Use
  Company Number: US-ASTRAZENECA-2011SE35362

PATIENT
  Age: 56 Year
  Sex: Female

DRUGS (6)
  1. SEROQUEL [Suspect]
     Indication: BIPOLAR DISORDER
     Route: 048
  2. SEROQUEL [Suspect]
     Route: 048
  3. SEROQUEL [Suspect]
     Route: 048
  4. SEROQUEL [Suspect]
     Route: 048
  5. SEROQUEL [Suspect]
     Indication: SLEEP DISORDER
     Route: 048
  6. SEROQUEL [Suspect]
     Route: 048

REACTIONS (9)
  - HEADACHE [None]
  - JOINT SWELLING [None]
  - OEDEMA PERIPHERAL [None]
  - OFF LABEL USE [None]
  - SOMNAMBULISM [None]
  - VERTIGO POSITIONAL [None]
  - PALPITATIONS [None]
  - THYROID DISORDER [None]
  - LIVER FUNCTION TEST ABNORMAL [None]
